FAERS Safety Report 18688988 (Version 2)
Quarter: 2021Q1

REPORT INFORMATION
  Report Type: Spontaneous
  Country: US (occurrence: US)
  Receive Date: 20201231
  Receipt Date: 20210119
  Transmission Date: 20210419
  Serious: Yes (Other)
  Sender: FDA-Public Use
  Company Number: US-009507513-2012USA012835

PATIENT
  Age: 70 Year
  Sex: Female

DRUGS (1)
  1. KEYTRUDA [Suspect]
     Active Substance: PEMBROLIZUMAB
     Indication: GALLBLADDER ADENOCARCINOMA
     Dosage: 200 MILLIGRAM, EVERY 3 WEEKS

REACTIONS (3)
  - Immune-mediated arthritis [Unknown]
  - Tenosynovitis [Unknown]
  - Raynaud^s phenomenon [Unknown]
